FAERS Safety Report 8015268-2 (Version None)
Quarter: 2011Q4

REPORT INFORMATION
  Report Type: 
  Country: None (occurrence: None)
  Receive Date: 20111230
  Receipt Date: 20111219
  Transmission Date: 20120403
  Serious: Yes (Hospitalization)
  Sender: FDA-Public Use
  Company Number: GB-RANBAXY-2011R1-51375

PATIENT
  Age: 58 Year
  Sex: Male
  Weight: 80 kg

DRUGS (2)
  1. NAPROXEN [Suspect]
     Indication: PRODUCT USED FOR UNKNOWN INDICATION
     Dosage: UNK
     Route: 065
     Dates: start: 20111024, end: 20111130
  2. SULFASALAZINE [Suspect]
     Indication: RHEUMATOID ARTHRITIS
     Dosage: UNK
     Route: 048
     Dates: start: 20111024, end: 20111130

REACTIONS (5)
  - CHILLS [None]
  - RASH [None]
  - PYREXIA [None]
  - NAUSEA [None]
  - HEADACHE [None]
